FAERS Safety Report 6657716-6 (Version None)
Quarter: 2010Q1

REPORT INFORMATION
  Report Type: 
  Country: None (occurrence: None)
  Receive Date: 20100322
  Receipt Date: 20090925
  Transmission Date: 20100710
  Serious: Yes (Hospitalization)
  Sender: FDA-Public Use
  Company Number: 1-0909-31

PATIENT
  Age: 24 Month
  Sex: Male

DRUGS (8)
  1. DERMA-SMOOTHE/FS [Suspect]
     Indication: ECZEMA
     Dosage: TOPICAL
     Route: 061
  2. SINGULAIR [Concomitant]
  3. PREDNISONE [Concomitant]
  4. ATARAX [Concomitant]
  5. ALBUTEROL [Concomitant]
  6. PULMICORT [Concomitant]
  7. POLYCOSE [Concomitant]
  8. PRILOSEC [Concomitant]

REACTIONS (1)
  - HYPERSENSITIVITY [None]
